FAERS Safety Report 8178620-0 (Version None)
Quarter: 2012Q1

REPORT INFORMATION
  Report Type: 
  Country: None (occurrence: None)
  Receive Date: 20120301
  Receipt Date: 20120223
  Transmission Date: 20120608
  Serious: Yes (Hospitalization)
  Sender: FDA-Public Use
  Company Number: US-RB-037116-12

PATIENT
  Age: 27 Year
  Sex: Male

DRUGS (3)
  1. SUBOXONE [Suspect]
     Indication: DRUG DEPENDENCE
     Dosage: UNKNOWN DOSE
     Route: 060
     Dates: start: 20100101, end: 20110101
  2. SUBOXONE [Suspect]
     Indication: DRUG DEPENDENCE
     Dosage: UNKNOWN DOSE
     Route: 060
     Dates: start: 20110101, end: 20111001
  3. SUBUTEX [Suspect]
     Indication: DRUG DEPENDENCE
     Route: 060
     Dates: start: 20111001, end: 20111201

REACTIONS (4)
  - HEADACHE [None]
  - PHOTOPHOBIA [None]
  - DRUG WITHDRAWAL SYNDROME [None]
  - VOMITING [None]
